FAERS Safety Report 5229818-2 (Version None)
Quarter: 2007Q1

REPORT INFORMATION
  Report Type: 
  Country: None (occurrence: None)
  Receive Date: 20070206
  Receipt Date: 20061103
  Transmission Date: 20070707
  Serious: No
  Sender: FDA-Public Use
  Company Number: US-GLAXOSMITHKLINE-A0626190A

PATIENT
  Sex: Female

DRUGS (4)
  1. PAXIL [Suspect]
     Dosage: 60MG PER DAY
     Route: 048
  2. PROVIGIL [Concomitant]
  3. MIRAPEX [Concomitant]
  4. LAMICTAL [Concomitant]

REACTIONS (6)
  - AMNESIA [None]
  - DIZZINESS [None]
  - DRUG WITHDRAWAL SYNDROME [None]
  - HYPERHIDROSIS [None]
  - NAUSEA [None]
  - THINKING ABNORMAL [None]
